FAERS Safety Report 6119857-1 (Version None)
Quarter: 2009Q1

REPORT INFORMATION
  Report Type: 
  Country: None (occurrence: None)
  Receive Date: 20090316
  Receipt Date: 20090312
  Transmission Date: 20090719
  Serious: Yes (Other)
  Sender: FDA-Public Use
  Company Number: GR-WYE-G03325709

PATIENT
  Age: 65 Year
  Sex: Female

DRUGS (4)
  1. TYGACIL [Suspect]
     Indication: MEDIASTINITIS
     Route: 042
     Dates: start: 20090203, end: 20090214
  2. ZYVOXID [Concomitant]
     Route: 048
  3. FUNGUSTATIN [Concomitant]
     Dosage: 400MG TWICE DAILY
  4. COLISTIN SULFATE [Suspect]
     Dosage: 2 X 1,000,000 UNITS THREE TIMES DAILY

REACTIONS (1)
  - PIGMENTATION DISORDER [None]
